FAERS Safety Report 11173485 (Version 2)
Quarter: 2015Q3

REPORT INFORMATION
  Report Type: Report from Study
  Country: NL (occurrence: NL)
  Receive Date: 20150609
  Receipt Date: 20150703
  Transmission Date: 20151125
  Serious: Yes (Other)
  Sender: FDA-Public Use
  Company Number: NL-AMGEN-NLDSL2015039252

PATIENT
  Age: 72 Year
  Sex: Male

DRUGS (20)
  1. PLANTAGO OVATA [Concomitant]
     Active Substance: PLANTAGO OVATA LEAF
     Dosage: 3.6 G, UNK
     Dates: start: 20150504
  2. MICONAZOLE. [Concomitant]
     Active Substance: MICONAZOLE NITRATE
     Dosage: 20 MG/KG, UNK
     Dates: start: 20150504
  3. DEXA                               /00008501/ [Concomitant]
     Dosage: 1 MG, BID
  4. PARACETAMOL [Concomitant]
     Active Substance: ACETAMINOPHEN
     Dosage: 500 MG, UNK
     Route: 048
     Dates: start: 20150504
  5. SALBUTAMOL [Concomitant]
     Active Substance: ALBUTEROL
     Dosage: UNK
     Dates: start: 20150504
  6. XOFIGO [Suspect]
     Active Substance: RADIUM RA-223 DICHLORIDE
     Indication: PRODUCT USED FOR UNKNOWN INDICATION
     Dosage: UNK
     Route: 065
  7. CALCIUMCARBIMIDUM [Concomitant]
     Dosage: UNK
     Dates: start: 20150504
  8. FENTANYL. [Concomitant]
     Active Substance: FENTANYL
     Dosage: UNK
     Dates: start: 20150504
  9. DUROGESIC [Concomitant]
     Active Substance: FENTANYL
     Dosage: UNK
  10. CAD [Concomitant]
     Dosage: UNK
  11. GOSERELINE [Concomitant]
     Active Substance: GOSERELIN
     Dosage: 10.8 MG, UNK
     Dates: start: 20150421
  12. PANTOZOL [Concomitant]
     Active Substance: PANTOPRAZOLE SODIUM
     Dosage: UNK
  13. CODEINE [Concomitant]
     Active Substance: CODEINE
     Dosage: UNK UNK, QID
  14. OMEPRAZOLE. [Concomitant]
     Active Substance: OMEPRAZOLE
     Dosage: 40 MG, UNK
     Route: 048
     Dates: start: 20150504
  15. XGEVA [Suspect]
     Active Substance: DENOSUMAB
     Indication: METASTASES TO BONE
     Dosage: 120 MG, Q4WK
     Route: 058
     Dates: start: 20120917
  16. TAXOTERE [Concomitant]
     Active Substance: DOCETAXEL
     Dosage: UNK
  17. ABIRATERONE [Concomitant]
     Active Substance: ABIRATERONE
     Dosage: UNK
  18. LOPERAMIDE [Concomitant]
     Active Substance: LOPERAMIDE
     Dosage: 2 MG, UNK
     Route: 048
     Dates: start: 20150504
  19. DEXAMETHASONE. [Concomitant]
     Active Substance: DEXAMETHASONE
     Dosage: 0.5 MG, UNK
     Route: 048
     Dates: start: 20150504
  20. BECLOMETASON [Concomitant]
     Active Substance: BECLOMETHASONE DIPROPIONATE
     Dosage: UNK
     Dates: start: 20150421

REACTIONS (21)
  - Hepatic steatosis [Unknown]
  - Candida infection [Unknown]
  - Pancytopenia [Unknown]
  - Prostate cancer metastatic [Unknown]
  - Gastroenteritis viral [Unknown]
  - Malaise [Unknown]
  - Hypocalcaemia [Unknown]
  - Back pain [Unknown]
  - Hypophosphataemia [Unknown]
  - Decreased appetite [Unknown]
  - Pain in extremity [Unknown]
  - Pneumonia [Unknown]
  - Liver function test abnormal [Unknown]
  - Diarrhoea [Not Recovered/Not Resolved]
  - Metastases to bone [Unknown]
  - Neoplasm progression [Unknown]
  - Prostate cancer [Unknown]
  - Nausea [Unknown]
  - Pulmonary embolism [Unknown]
  - Neutropenia [Unknown]
  - Constipation [Unknown]

NARRATIVE: CASE EVENT DATE: 20121119
